FAERS Safety Report 10844894 (Version 2)
Quarter: 2015Q1

REPORT INFORMATION
  Report Type: Spontaneous
  Country: DE (occurrence: DE)
  Receive Date: 20150220
  Receipt Date: 20150327
  Transmission Date: 20150721
  Serious: Yes (Death)
  Sender: FDA-Public Use
  Company Number: DE-ACTELION-A-CH2015-113270

PATIENT
  Age: 17 Year
  Sex: Female
  Weight: 59.6 kg

DRUGS (3)
  1. SILDENAFIL. [Concomitant]
     Active Substance: SILDENAFIL
  2. OPSUMIT [Suspect]
     Active Substance: MACITENTAN
     Indication: PULMONARY ARTERIAL HYPERTENSION
     Dosage: 10 MG, OD
     Route: 048
  3. AMLODIPIN [Concomitant]
     Active Substance: AMLODIPINE BESYLATE

REACTIONS (11)
  - Right ventricular failure [Fatal]
  - Vomiting [Unknown]
  - Carbon dioxide abnormal [Fatal]
  - Adenoidal hypertrophy [Unknown]
  - Upper airway obstruction [Unknown]
  - Pulmonary vascular resistance abnormality [Unknown]
  - Sinus operation [Unknown]
  - Sinusitis [Unknown]
  - Tonsillar hypertrophy [Unknown]
  - Respiratory tract infection [Unknown]
  - Cardiac arrest [Fatal]

NARRATIVE: CASE EVENT DATE: 20150125
